FAERS Safety Report 24322346 (Version 1)
Quarter: 2024Q3

REPORT INFORMATION
  Report Type: Spontaneous
  Country: JP (occurrence: None)
  Receive Date: 20240916
  Receipt Date: 20240916
  Transmission Date: 20241016
  Serious: Yes (Other)
  Sender: ASTRAZENECA
  Company Number: 2024A207741

PATIENT
  Age: 91 Year
  Sex: Female

DRUGS (2)
  1. ONDEXXYA [Suspect]
     Active Substance: ANDEXANET ALFA
     Indication: Cerebral haemorrhage
     Dosage: 00 MG IV AT A RATE OF 30 MG/MIN FOLLOWED BY 960 MG IV AT A RATE OF 8 MG/MIN FOR 2 H1760.0MG UNKNOWN
     Route: 042
  2. RIVAROXABAN [Concomitant]
     Active Substance: RIVAROXABAN
     Dosage: DOSE UNKNOWN
     Route: 048

REACTIONS (1)
  - Cerebral haemorrhage [Unknown]
